FAERS Safety Report 5378559-X (Version None)
Quarter: 2007Q3

REPORT INFORMATION
  Report Type: 
  Country: None (occurrence: None)
  Receive Date: 20070705
  Receipt Date: 20070626
  Transmission Date: 20080115
  Serious: Yes (Other)
  Sender: FDA-Public Use
  Company Number: DE-JNJFOC-20070606597

PATIENT
  Sex: Male

DRUGS (4)
  1. CAELYX [Suspect]
     Indication: KAPOSI'S SARCOMA
     Route: 042
  2. MCP [Concomitant]
     Indication: NAUSEA
     Route: 065
  3. TRUVADA [Concomitant]
     Route: 065
  4. SUSTIVA [Concomitant]
     Route: 065

REACTIONS (1)
  - BLOOD HIV RNA INCREASED [None]
